FAERS Safety Report 19699524 (Version 3)
Quarter: 2024Q4

REPORT INFORMATION
  Report Type: Spontaneous
  Country: HR (occurrence: HR)
  Receive Date: 20210813
  Receipt Date: 20241120
  Transmission Date: 20250115
  Serious: Yes (Hospitalization, Other)
  Sender: PFIZER
  Company Number: HR-009507513-2107HRV005449

PATIENT
  Age: 23 Year
  Sex: Female

DRUGS (2)
  1. CLINDAMYCIN HYDROCHLORIDE [Suspect]
     Active Substance: CLINDAMYCIN HYDROCHLORIDE
     Indication: Peritonsillar abscess
     Dosage: 600 MG EVERY EIGHT HOURS FOR TEN DAYS
     Dates: start: 2021, end: 2021
  2. GARDASIL [Suspect]
     Active Substance: HUMAN PAPILLOMAVIRUS QUADRIVALENT (TYPES 6, 11, 16, AND 18) VACCINE, RECOMBINANT
     Indication: Prophylaxis
     Dosage: UNK
     Dates: start: 202104

REACTIONS (12)
  - Cystitis noninfective [Unknown]
  - Rash [Recovered/Resolved]
  - Peritonsillitis [Not Recovered/Not Resolved]
  - Vomiting [Unknown]
  - Endometriosis [Not Recovered/Not Resolved]
  - Blood urine present [Unknown]
  - Herpes zoster [Recovered/Resolved]
  - Immune system disorder [Not Recovered/Not Resolved]
  - Ultrasound ovary abnormal [Not Recovered/Not Resolved]
  - Peritonsillar abscess [Not Recovered/Not Resolved]
  - Oropharyngeal pain [Unknown]
  - Fungal infection [Unknown]

NARRATIVE: CASE EVENT DATE: 20210101
